FAERS Safety Report 20023930 (Version 2)
Quarter: 2021Q4

REPORT INFORMATION
  Report Type: Spontaneous
  Country: CH (occurrence: CH)
  Receive Date: 20211102
  Receipt Date: 20211102
  Transmission Date: 20220303
  Serious: Yes (Death, Life-Threatening, Hospitalization)
  Sender: FDA-Public Use
  Company Number: None

PATIENT
  Age: 69 Year
  Sex: Male

DRUGS (7)
  1. METHOTREXATE [Suspect]
     Active Substance: METHOTREXATE
     Indication: Rheumatoid arthritis
     Dosage: 20MG PER OS 1X/EVERY WEEK?ON TUESDAY, LAST TIME ON 10.08.2021
     Route: 048
     Dates: end: 20210810
  2. LEFLUNOMIDE [Suspect]
     Active Substance: LEFLUNOMIDE
     Indication: Rheumatoid arthritis
     Dosage: 20MG/D ORAL INTAKE, LAST TIME ON 15.08.2021
     Route: 048
     Dates: end: 20210815
  3. METFORMIN HYDROCHLORIDE [Concomitant]
     Active Substance: METFORMIN HYDROCHLORIDE
     Dosage: 1000MG 1-0-0-1, COMEDICATION ON 15.08.2021, SINCE AN?UNKNOWN DATE (BUT BEFORE_
     Route: 048
  4. folic acid streuli [Concomitant]
     Dosage: 5MG 1-0-0-0 1X/WEEK, COMEDICATION ON 15.08.2021, SINCE?THEN
     Route: 048
  5. Prednisone streuli [Concomitant]
     Dosage: 20MG 1-0-0-0, COMEDICATION ON 15.08.2021, SSINCE U
     Route: 048
  6. INSULIN LISPRO [Concomitant]
     Active Substance: INSULIN LISPRO
     Dosage: 12IE-0-0-0 S.C. COMEDICATION ON 15.08.2021,SINCE AN UNKNOWN DATE (BUT BEFORE
     Route: 058
  7. PANTOPRAZOLE [Concomitant]
     Active Substance: PANTOPRAZOLE
     Dosage: 40MG 1-0-0-0. COMEDICATION ON 15.08.2021,SINCE AN UNKNOWN DATE (BUT BEFORE
     Route: 048

REACTIONS (2)
  - Septic shock [Fatal]
  - Pancytopenia [Fatal]

NARRATIVE: CASE EVENT DATE: 20210815
